FAERS Safety Report 9705543 (Version 2)
Quarter: 2013Q4

REPORT INFORMATION
  Report Type: Spontaneous
  Country: FR (occurrence: FR)
  Receive Date: 20131122
  Receipt Date: 20131204
  Transmission Date: 20140711
  Serious: Yes (Hospitalization)
  Sender: FDA-Public Use
  Company Number: PHHY2013FR131955

PATIENT
  Age: 69 Year
  Sex: Male

DRUGS (3)
  1. VANCOMYCIN [Suspect]
  2. RIFADINE [Suspect]
  3. GENTALLINE [Concomitant]

REACTIONS (23)
  - Drug reaction with eosinophilia and systemic symptoms [Recovering/Resolving]
  - Human herpes virus 6 serology positive [Unknown]
  - Rash maculo-papular [Recovering/Resolving]
  - Eosinophilia [Recovering/Resolving]
  - Face oedema [Recovering/Resolving]
  - Dermatitis exfoliative [Recovering/Resolving]
  - Thrombocytopenia [Recovering/Resolving]
  - Pyrexia [Unknown]
  - Metabolic acidosis [Unknown]
  - Disseminated intravascular coagulation [Unknown]
  - Hepatic failure [Not Recovered/Not Resolved]
  - Transaminases increased [Unknown]
  - Prothrombin time ratio decreased [Unknown]
  - Coagulation factor V level decreased [Unknown]
  - Histiocytosis haematophagic [Unknown]
  - Encephalopathy [Unknown]
  - Multi-organ failure [Unknown]
  - Septic shock [Recovering/Resolving]
  - Hypothermia [Unknown]
  - Confusional state [Unknown]
  - Renal failure [Recovering/Resolving]
  - Renal failure acute [Recovering/Resolving]
  - Inflammation [Recovering/Resolving]
